FAERS Safety Report 19574885 (Version 1)
Quarter: 2021Q3

REPORT INFORMATION
  Report Type: Spontaneous
  Country: US (occurrence: US)
  Receive Date: 20210719
  Receipt Date: 20210719
  Transmission Date: 20211014
  Serious: Yes (Death, Hospitalization, Other)
  Sender: FDA-Public Use
  Company Number: US-MDD US OPERATIONS-MDD202107-001337

PATIENT
  Age: 81 Year
  Sex: Male

DRUGS (2)
  1. APOKYN [Suspect]
     Active Substance: APOMORPHINE HYDROCHLORIDE
     Indication: PARKINSON^S DISEASE
     Route: 058
     Dates: start: 20180110
  2. APOKYN [Suspect]
     Active Substance: APOMORPHINE HYDROCHLORIDE
     Dosage: UP TO 0.6ML
     Route: 058

REACTIONS (4)
  - Cardiac arrest [Fatal]
  - Malaise [Unknown]
  - Haemoptysis [Unknown]
  - Dysphagia [Unknown]

NARRATIVE: CASE EVENT DATE: 20210627
